FAERS Safety Report 7734327-2 (Version None)
Quarter: 2011Q3

REPORT INFORMATION
  Report Type: 
  Country: None (occurrence: None)
  Receive Date: 20110907
  Receipt Date: 20110824
  Transmission Date: 20111222
  Serious: Yes (Other)
  Sender: FDA-Public Use
  Company Number: CA-GENENTECH-305461

PATIENT
  Sex: Female

DRUGS (2)
  1. XOLAIR [Suspect]
     Dosage: UNK
     Dates: start: 20110406
  2. XOLAIR [Suspect]
     Indication: ASTHMA
     Dosage: 375 MG, Q2W
     Route: 058
     Dates: start: 20050722

REACTIONS (8)
  - CHEST DISCOMFORT [None]
  - UNDERDOSE [None]
  - DIABETES MELLITUS [None]
  - FATIGUE [None]
  - ASTHMA [None]
  - COUGH [None]
  - FEELING ABNORMAL [None]
  - CHEST PAIN [None]
